FAERS Safety Report 8204664-6 (Version None)
Quarter: 2012Q1

REPORT INFORMATION
  Report Type: 
  Country: None (occurrence: None)
  Receive Date: 20120313
  Receipt Date: 20120307
  Transmission Date: 20120608
  Serious: Yes (Hospitalization, Congenital Anomaly, Other)
  Sender: FDA-Public Use
  Company Number: US-PFIZER INC-2012048308

PATIENT
  Sex: Male
  Weight: 3.7 kg

DRUGS (2)
  1. ZOLOFT [Suspect]
     Dosage: 50 MG,
     Route: 064
     Dates: start: 20050516
  2. ZOLOFT [Suspect]
     Dosage: 100 MG,
     Route: 064
     Dates: start: 20050909

REACTIONS (8)
  - CARDIOMEGALY [None]
  - MATERNAL DRUGS AFFECTING FOETUS [None]
  - MATERNAL EXPOSURE TIMING UNSPECIFIED [None]
  - AORTIC VALVE INCOMPETENCE [None]
  - AORTIC STENOSIS [None]
  - TRICUSPID VALVE INCOMPETENCE [None]
  - CAESAREAN SECTION [None]
  - LEFT VENTRICULAR HYPERTROPHY [None]
